FAERS Safety Report 9349450 (Version 1)
Quarter: 2013Q2

REPORT INFORMATION
  Report Type: Spontaneous
  Country: US (occurrence: US)
  Receive Date: 20130614
  Receipt Date: 20130614
  Transmission Date: 20140414
  Serious: No
  Sender: FDA-Public Use
  Company Number: US-ASTRAZENECA-2013SE40382

PATIENT
  Age: 76 Year
  Sex: Female

DRUGS (2)
  1. CRESTOR [Suspect]
     Route: 048
  2. PLAVIX [Suspect]
     Route: 065

REACTIONS (3)
  - Eye pain [Unknown]
  - Headache [Unknown]
  - Intentional drug misuse [Unknown]
